FAERS Safety Report 9797591 (Version 1)
Quarter: 2014Q1

REPORT INFORMATION
  Report Type: Spontaneous
  Country: AU (occurrence: AU)
  Receive Date: 20140106
  Receipt Date: 20140106
  Transmission Date: 20141002
  Serious: Yes (Hospitalization)
  Sender: FDA-Public Use
  Company Number: AU-ACCORD-021110

PATIENT
  Age: 41 Year
  Sex: Male

DRUGS (5)
  1. QUETIAPINE FUMARATE [Suspect]
     Dosage: EXTENDED-RELEASE
     Route: 048
  2. CARBAMAZEPINE [Suspect]
     Dosage: CONTROLLED-RELEASE
     Route: 048
  3. OXAZEPAM [Suspect]
     Route: 048
  4. FLUOXETINE [Suspect]
     Route: 048
  5. SODIUM VALPROATE [Suspect]
     Dosage: ENTERIC-COATED
     Route: 048

REACTIONS (4)
  - Toxicity to various agents [Recovering/Resolving]
  - Distributive shock [Recovering/Resolving]
  - Coma [Recovering/Resolving]
  - Pneumonia aspiration [Recovering/Resolving]
